FAERS Safety Report 5089937-0 (Version None)
Quarter: 2006Q3

REPORT INFORMATION
  Report Type: 
  Country: None (occurrence: None)
  Receive Date: 20060823
  Receipt Date: 20060807
  Transmission Date: 20061208
  Serious: Yes (Other)
  Sender: FDA-Public Use
  Company Number: TRP_0847_2006

PATIENT
  Age: 53 Year
  Sex: Female

DRUGS (8)
  1. RIBASPHERE [Suspect]
     Indication: HEPATITIS C
     Dosage: DF PO
     Route: 048
     Dates: start: 20060111
  2. PEG-INTRON [Suspect]
     Indication: HEPATITIS C
     Dosage: DF SC
     Route: 058
     Dates: start: 20060101
  3. ATENOLOL [Concomitant]
  4. LISINOPRIL [Concomitant]
  5. NEURONTIN [Concomitant]
  6. PROZAC [Concomitant]
  7. RISPERDAL [Concomitant]
  8. TRAZODONE HCL [Concomitant]

REACTIONS (4)
  - ABASIA [None]
  - ANAEMIA [None]
  - ASTHENIA [None]
  - FATIGUE [None]
